FAERS Safety Report 8940324 (Version 1)
Quarter: 2012Q4

REPORT INFORMATION
  Report Type: 
  Country: BR (occurrence: BR)
  Receive Date: 20121130
  Receipt Date: 20121130
  Transmission Date: 20130627
  Serious: Yes (Death, Hospitalization)
  Sender: FDA-Public Use
  Company Number: BR-B.I. PHARMACEUTICALS,INC./RIDGEFIELD-2012-BR-00952BR

PATIENT
  Age: 20 Year
  Sex: Female

DRUGS (5)
  1. ELODIUS [Suspect]
     Indication: HIV INFECTION
     Dosage: 1000 mg
     Route: 048
     Dates: end: 20121118
  2. LAMIVUDINA [Concomitant]
     Indication: HIV INFECTION
     Dates: end: 20121118
  3. TENOFOVIR [Concomitant]
     Indication: HIV INFECTION
     Dates: end: 20121118
  4. RALTEGRAVIR [Concomitant]
     Indication: HIV INFECTION
     Dates: end: 20121118
  5. CORTICOID [Concomitant]
     Indication: MENINGITIS TUBERCULOUS
     Dates: end: 20121118

REACTIONS (7)
  - Meningitis tuberculous [Fatal]
  - Intracranial pressure increased [Unknown]
  - Hydrocephalus [Unknown]
  - Pregnancy [None]
  - Maternal exposure during pregnancy [None]
  - Premature delivery [None]
  - Caesarean section [None]
